FAERS Safety Report 23888358 (Version 1)
Quarter: 2024Q2

REPORT INFORMATION
  Report Type: Spontaneous
  Country: US (occurrence: None)
  Receive Date: 20240522
  Receipt Date: 20240522
  Transmission Date: 20240716
  Serious: Yes (Hospitalization)
  Sender: FDA-Public Use
  Company Number: None

PATIENT
  Age: 76 Year
  Sex: Male

DRUGS (1)
  1. BOSENTAN [Suspect]
     Active Substance: BOSENTAN
     Indication: Pulmonary arterial hypertension
     Dosage: 125MG BID ORAL
     Route: 048
     Dates: start: 20190610

REACTIONS (2)
  - Left ventricular failure [None]
  - Pulmonary oedema [None]

NARRATIVE: CASE EVENT DATE: 20240522
